FAERS Safety Report 6780219-5 (Version None)
Quarter: 2010Q2

REPORT INFORMATION
  Report Type: 
  Country: None (occurrence: None)
  Receive Date: 20100618
  Receipt Date: 20100608
  Transmission Date: 20101027
  Serious: Yes (Other)
  Sender: FDA-Public Use
  Company Number: US-PFIZER INC-2010073567

PATIENT
  Sex: Female
  Weight: 77.098 kg

DRUGS (8)
  1. CHANTIX [Suspect]
     Indication: SMOKING CESSATION THERAPY
     Dosage: 0.5 MG, DAILY
     Route: 048
     Dates: start: 20100605
  2. LEVOTHYROXINE [Concomitant]
     Indication: THYROID DISORDER
     Dosage: UNK
  3. LOVASTATIN [Concomitant]
     Indication: BLOOD CHOLESTEROL INCREASED
     Dosage: UNK
  4. PLAVIX [Concomitant]
     Dosage: UNK
  5. NIFEDIPINE [Concomitant]
     Dosage: UNK
  6. CARTEOLOL [Concomitant]
     Indication: HYPERTENSION
     Dosage: UNK
  7. ENALAPRIL [Concomitant]
     Indication: HYPERTENSION
     Dosage: UNK
  8. XANAX [Concomitant]
     Indication: PANIC ATTACK
     Dosage: UNK

REACTIONS (5)
  - HOSTILITY [None]
  - NERVOUSNESS [None]
  - PANIC ATTACK [None]
  - TENSION [None]
  - TREMOR [None]
